FAERS Safety Report 7989538-8 (Version None)
Quarter: 2011Q4

REPORT INFORMATION
  Report Type: 
  Country: None (occurrence: None)
  Receive Date: 20111219
  Receipt Date: 20110909
  Transmission Date: 20120403
  Serious: No
  Sender: FDA-Public Use
  Company Number: US-ASTRAZENECA-2011SE54244

PATIENT
  Sex: Female
  Weight: 53.5 kg

DRUGS (6)
  1. ACTINEL [Concomitant]
     Indication: OSTEOPOROSIS
  2. SYNTHROID [Concomitant]
  3. CRESTOR [Suspect]
     Indication: BLOOD PRESSURE ABNORMAL
     Route: 048
  4. MICARDIS [Concomitant]
  5. GENERIC TANOLOC [Concomitant]
  6. WARFARIN SODIUM [Concomitant]

REACTIONS (2)
  - CONSTIPATION [None]
  - OFF LABEL USE [None]
